FAERS Safety Report 17271525 (Version 1)
Quarter: 2020Q1

REPORT INFORMATION
  Report Type: Report from Study
  Country: US (occurrence: US)
  Receive Date: 20200115
  Receipt Date: 20200115
  Transmission Date: 20200409
  Serious: Yes (Hospitalization)
  Sender: FDA-Public Use
  Company Number: US-ROCHE-2140233

PATIENT
  Age: 47 Year
  Sex: Female

DRUGS (10)
  1. COREG CR [Concomitant]
     Active Substance: CARVEDILOL PHOSPHATE
     Route: 065
     Dates: start: 20180314, end: 20180608
  2. MEMANTINE. [Concomitant]
     Active Substance: MEMANTINE
     Route: 065
     Dates: start: 20170404
  3. ENTRECTINIB [Suspect]
     Active Substance: ENTRECTINIB
     Indication: NEOPLASM
     Dosage: DATE OF LAST DOSE PRIOR TO SAE 07/JUN/2018
     Route: 048
     Dates: start: 20171215
  4. KEPPRA [Concomitant]
     Active Substance: LEVETIRACETAM
     Route: 065
     Dates: start: 20180426
  5. LASIX [Concomitant]
     Active Substance: FUROSEMIDE
     Route: 042
     Dates: start: 20180609, end: 20180609
  6. ENTRECTINIB [Suspect]
     Active Substance: ENTRECTINIB
     Dosage: DOSE REDUCED TO 400 MG
     Route: 048
     Dates: start: 20180410
  7. ZAROXOLYN [Concomitant]
     Active Substance: METOLAZONE
     Route: 065
     Dates: start: 20180410
  8. LASIX [Concomitant]
     Active Substance: FUROSEMIDE
     Route: 042
     Dates: start: 20180608, end: 20180608
  9. LASIX [Concomitant]
     Active Substance: FUROSEMIDE
     Route: 042
     Dates: start: 20180302, end: 20180608
  10. COREG CR [Concomitant]
     Active Substance: CARVEDILOL PHOSPHATE
     Route: 048
     Dates: start: 20180608, end: 20180609

REACTIONS (1)
  - Hypervolaemia [Recovered/Resolved]

NARRATIVE: CASE EVENT DATE: 20180608
